FAERS Safety Report 25532751 (Version 1)
Quarter: 2025Q3

REPORT INFORMATION
  Report Type: Spontaneous
  Country: GB (occurrence: GB)
  Receive Date: 20250709
  Receipt Date: 20250709
  Transmission Date: 20251020
  Serious: Yes (Other)
  Sender: UCB
  Company Number: GB-UCBSA-2025038203

PATIENT
  Sex: Female
  Weight: 56 kg

DRUGS (1)
  1. NEUPRO [Suspect]
     Active Substance: ROTIGOTINE
     Indication: Parkinson^s disease
     Dosage: 8 MILLIGRAM, ONCE DAILY (QD)
     Route: 062
     Dates: start: 2018

REACTIONS (4)
  - Application site rash [Recovered/Resolved]
  - Incorrect dose administered [Unknown]
  - Product adhesion issue [Unknown]
  - Application site pruritus [Unknown]

NARRATIVE: CASE EVENT DATE: 20250101
